FAERS Safety Report 8614362-2 (Version None)
Quarter: 2012Q3

REPORT INFORMATION
  Report Type: 
  Country: None (occurrence: None)
  Receive Date: 20120823
  Receipt Date: 20120821
  Transmission Date: 20120928
  Serious: Yes (Disabling, Other)
  Sender: FDA-Public Use
  Company Number: CA-BAYER-2012-086061

PATIENT
  Age: 47 Year
  Sex: Female
  Weight: 45 kg

DRUGS (1)
  1. AVELOX [Suspect]
     Dosage: UNK
     Route: 048

REACTIONS (22)
  - PAIN IN JAW [None]
  - SWELLING [None]
  - ARTHRALGIA [None]
  - FATIGUE [None]
  - TOOTH DISORDER [None]
  - EYE PAIN [None]
  - ANXIETY [None]
  - MOOD ALTERED [None]
  - VITAMIN B12 DEFICIENCY [None]
  - RESTLESS LEGS SYNDROME [None]
  - VISUAL IMPAIRMENT [None]
  - HYPERSENSITIVITY [None]
  - MICTURITION URGENCY [None]
  - THROMBOSIS [None]
  - DEPRESSION [None]
  - FACIAL PAIN [None]
  - VERTIGO [None]
  - HYPOAESTHESIA [None]
  - MIGRAINE [None]
  - MUSCLE SPASMS [None]
  - TENDON DISORDER [None]
  - TREMOR [None]
